FAERS Safety Report 7955461-8 (Version None)
Quarter: 2011Q4

REPORT INFORMATION
  Report Type: 
  Country: None (occurrence: None)
  Receive Date: 20111202
  Receipt Date: 20111129
  Transmission Date: 20120403
  Serious: Yes (Death, Life-Threatening, Hospitalization)
  Sender: FDA-Public Use
  Company Number: RO-ABBOTT-11P-135-0836232-00

PATIENT
  Sex: Female
  Weight: 80 kg

DRUGS (4)
  1. PREDNISONE TAB [Concomitant]
     Indication: RHEUMATOID ARTHRITIS
     Route: 048
     Dates: start: 19900101
  2. METHOTREXATE [Concomitant]
     Indication: RHEUMATOID ARTHRITIS
     Dosage: 20 MG/WEEK
     Route: 030
     Dates: start: 20080101
  3. HUMIRA [Suspect]
     Indication: RHEUMATOID ARTHRITIS
     Route: 058
     Dates: start: 20100201
  4. LEFLUNOMIDE [Concomitant]
     Indication: RHEUMATOID ARTHRITIS
     Route: 048
     Dates: start: 20091001

REACTIONS (11)
  - RENAL FAILURE [None]
  - DISORIENTATION [None]
  - HEMIPARESIS [None]
  - MEMORY IMPAIRMENT [None]
  - CERVICAL VERTEBRAL FRACTURE [None]
  - LUMBAR VERTEBRAL FRACTURE [None]
  - THROMBOSIS [None]
  - SECONDARY HYPERTENSION [None]
  - SPEECH DISORDER [None]
  - CARDIOGENIC SHOCK [None]
  - CARDIAC ARREST [None]
